FAERS Safety Report 5972199-7 (Version None)
Quarter: 2008Q4

REPORT INFORMATION
  Report Type: 
  Country: None (occurrence: None)
  Receive Date: 20081201
  Receipt Date: 20071023
  Transmission Date: 20090506
  Serious: No
  Sender: FDA-Public Use
  Company Number: US-TEVA-163478USA

PATIENT
  Sex: Male
  Weight: 74.002 kg

DRUGS (2)
  1. SALBUTAMOL SULFATE INHALATION, 0.09 MG [Suspect]
     Dosage: 2 PUFFS, 2-3 TIMES A DAY AS NEEDED
     Route: 048
  2. FLUTICASONE PROPIONATE [Concomitant]

REACTIONS (2)
  - AGEUSIA [None]
  - HYPOAESTHESIA ORAL [None]
